FAERS Safety Report 4443348-7 (Version None)
Quarter: 2004Q3

REPORT INFORMATION
  Report Type: 
  Country: None (occurrence: None)
  Receive Date: 20040901
  Receipt Date: 20040823
  Transmission Date: 20050211
  Serious: Yes (Hospitalization)
  Sender: FDA-Public Use
  Company Number: 2004229843US

PATIENT
  Age: 67 Year
  Sex: Female
  Weight: 61.7 kg

DRUGS (1)
  1. CAMPTOSAR [Suspect]
     Indication: SMALL CELL LUNG CANCER LIMITED STAGE
     Dates: start: 20040812

REACTIONS (1)
  - OESOPHAGITIS [None]
